FAERS Safety Report 8495171-4 (Version None)
Quarter: 2012Q3

REPORT INFORMATION
  Report Type: 
  Country: None (occurrence: None)
  Receive Date: 20120709
  Receipt Date: 20120703
  Transmission Date: 20120928
  Serious: Yes (Hospitalization)
  Sender: FDA-Public Use
  Company Number: US-BAYER-201020256NA

PATIENT
  Age: 48 Year
  Sex: Female
  Weight: 81.633 kg

DRUGS (2)
  1. YAZ [Suspect]
     Indication: ORAL CONTRACEPTION
     Dosage: UNK UNK, QD
     Route: 048
     Dates: start: 20080401, end: 20100201
  2. ZYRTEC [Concomitant]
     Dosage: 10 MG, UNK
     Route: 048

REACTIONS (8)
  - VARICOSE VEIN [None]
  - OEDEMA PERIPHERAL [None]
  - PAIN [None]
  - INDURATION [None]
  - ERYTHEMA [None]
  - FEELING HOT [None]
  - THROMBOSIS [None]
  - THROMBOPHLEBITIS SUPERFICIAL [None]
